FAERS Safety Report 11107272 (Version 1)
Quarter: 2015Q2

REPORT INFORMATION
  Report Type: Spontaneous
  Country: US (occurrence: US)
  Receive Date: 20150512
  Receipt Date: 20150512
  Transmission Date: 20150821
  Serious: Yes (Hospitalization, Other)
  Sender: FDA-Public Use
  Company Number: US-GLAXOSMITHKLINE-US2015061966

PATIENT
  Sex: Female

DRUGS (14)
  1. MICONAZOLE [Concomitant]
     Active Substance: MICONAZOLE
  2. PREDNISONE. [Concomitant]
     Active Substance: PREDNISONE
  3. COUMADIN [Concomitant]
     Active Substance: WARFARIN SODIUM
  4. MEPRON [Suspect]
     Active Substance: ATOVAQUONE
     Indication: ASPERGILLUS INFECTION
     Dosage: 1500 MG, QD
     Route: 048
     Dates: start: 2013
  5. LISINOPRIL. [Concomitant]
     Active Substance: LISINOPRIL
  6. CYTOXAN [Concomitant]
     Active Substance: CYCLOPHOSPHAMIDE
  7. MYFORTIC [Concomitant]
     Active Substance: MYCOPHENOLATE SODIUM
  8. HEPARIN [Concomitant]
     Active Substance: HEPARIN SODIUM
  9. COREG [Concomitant]
     Active Substance: CARVEDILOL
  10. IMURAN [Concomitant]
     Active Substance: AZATHIOPRINE
  11. LASIX [Concomitant]
     Active Substance: FUROSEMIDE
  12. CELLCEPT [Concomitant]
     Active Substance: MYCOPHENOLATE MOFETIL\MYCOPHENOLATE MOFETIL HYDROCHLORIDE
  13. PLAQUENIL [Concomitant]
     Active Substance: HYDROXYCHLOROQUINE SULFATE
  14. SOLU-MEDROL [Concomitant]
     Active Substance: METHYLPREDNISOLONE SODIUM SUCCINATE

REACTIONS (12)
  - Dehydration [Recovering/Resolving]
  - Blood pressure increased [Not Recovered/Not Resolved]
  - Vomiting [Recovering/Resolving]
  - Cough [Not Recovered/Not Resolved]
  - Pulmonary thrombosis [Not Recovered/Not Resolved]
  - Oedema [Not Recovered/Not Resolved]
  - Increased upper airway secretion [Recovering/Resolving]
  - Thrombosis [Not Recovered/Not Resolved]
  - Hypotension [Recovered/Resolved]
  - Lung abscess [Not Recovered/Not Resolved]
  - Fungal infection [Not Recovered/Not Resolved]
  - Hospitalisation [Recovered/Resolved]
